FAERS Safety Report 19490073 (Version 3)
Quarter: 2021Q4

REPORT INFORMATION
  Report Type: Report from Study
  Country: AU (occurrence: AU)
  Receive Date: 20210705
  Receipt Date: 20211004
  Transmission Date: 20220303
  Serious: Yes (Other)
  Sender: FDA-Public Use
  Company Number: AU-BIOGEN-2021BI01026320

PATIENT
  Age: 41 Year
  Sex: Female

DRUGS (4)
  1. TECFIDERA [Suspect]
     Active Substance: DIMETHYL FUMARATE
     Indication: Multiple sclerosis
     Route: 048
     Dates: start: 20201214
  2. VALDOXAN [Concomitant]
     Active Substance: AGOMELATINE
     Indication: Anxiety
     Route: 065
  3. Bricolin inhaler [Concomitant]
     Indication: Asthma
     Route: 065
  4. PANTOPRAZOLE SODIUM [Concomitant]
     Active Substance: PANTOPRAZOLE SODIUM
     Indication: Gastrooesophageal reflux disease
     Dosage: PRN
     Route: 065

REACTIONS (4)
  - Self-injurious ideation [Recovered/Resolved]
  - Depressed mood [Not Recovered/Not Resolved]
  - Binge eating [Not Recovered/Not Resolved]
  - Weight increased [Not Recovered/Not Resolved]

NARRATIVE: CASE EVENT DATE: 20210401
